FAERS Safety Report 8677968 (Version 3)
Quarter: 2018Q3

REPORT INFORMATION
  Report Type: Spontaneous
  Country: FR (occurrence: FR)
  Receive Date: 20120723
  Receipt Date: 20180910
  Transmission Date: 20181010
  Serious: Yes (Death, Hospitalization)
  Sender: FDA-Public Use
  Company Number: FR-ROCHE-1089026

PATIENT
  Age: 94 Year
  Sex: Male

DRUGS (16)
  1. IMOVANE [Concomitant]
     Active Substance: ZOPICLONE
  2. CALCIPARINE [Concomitant]
     Active Substance: HEPARIN CALCIUM
  3. SEROPRAM (CITALOPRAM HYDROBROMIDE) [Concomitant]
     Active Substance: CITALOPRAM HYDROBROMIDE
  4. ROCEPHINE [Suspect]
     Active Substance: CEFTRIAXONE SODIUM
     Indication: PRODUCT USED FOR UNKNOWN INDICATION
     Route: 058
     Dates: start: 20120622
  5. TAZOCILLINE [Concomitant]
     Active Substance: PIPERACILLIN SODIUM\TAZOBACTAM SODIUM
     Route: 065
     Dates: start: 20120622
  6. DUPHALAC (FRANCE) [Concomitant]
     Active Substance: LACTULOSE
  7. PERINDOPRIL [Concomitant]
     Active Substance: PERINDOPRIL
     Route: 065
  8. RIVOTRIL [Concomitant]
     Active Substance: CLONAZEPAM
  9. RIFADINE [Suspect]
     Active Substance: RIFAMPIN
     Indication: PRODUCT USED FOR UNKNOWN INDICATION
     Route: 048
     Dates: start: 20120622
  10. DISCOTRINE [Concomitant]
     Active Substance: NITROGLYCERIN
  11. VANCOMYCINE [Concomitant]
     Active Substance: VANCOMYCIN
     Route: 065
     Dates: start: 20120619, end: 20120622
  12. DOLIPRANE [Concomitant]
     Active Substance: ACETAMINOPHEN
  13. CIFLOX (FRANCE) [Suspect]
     Active Substance: CIPROFLOXACIN
     Indication: PRODUCT USED FOR UNKNOWN INDICATION
     Route: 048
     Dates: start: 20120622, end: 20120703
  14. EBIXA [Concomitant]
     Active Substance: MEMANTINE HYDROCHLORIDE
  15. COVERSYL [Concomitant]
     Active Substance: PERINDOPRIL
  16. CALCIDOSE (FRANCE) [Concomitant]
     Active Substance: CALCIUM CARBONATE

REACTIONS (2)
  - Renal failure [Not Recovered/Not Resolved]
  - Rash maculo-papular [Not Recovered/Not Resolved]

NARRATIVE: CASE EVENT DATE: 20120627
